FAERS Safety Report 25020774 (Version 1)
Quarter: 2025Q1

REPORT INFORMATION
  Report Type: Spontaneous
  Country: US (occurrence: US)
  Receive Date: 20250227
  Receipt Date: 20250227
  Transmission Date: 20250408
  Serious: Yes (Other)
  Sender: RK PHARMA
  Company Number: US-RK PHARMA, INC-20210400003

PATIENT
  Age: 76 Year
  Sex: Male
  Weight: 79 kg

DRUGS (2)
  1. MITOMYCIN [Suspect]
     Active Substance: MITOMYCIN
     Indication: Urinary tract neoplasm
     Route: 042
  2. MITOMYCIN [Suspect]
     Active Substance: MITOMYCIN
     Indication: Ureteric stenosis

REACTIONS (3)
  - Pelvic pain [Recovering/Resolving]
  - Balanoposthitis [Recovering/Resolving]
  - Pelvic inflammatory disease [Recovering/Resolving]
